FAERS Safety Report 4771339-5 (Version None)
Quarter: 2005Q3

REPORT INFORMATION
  Report Type: 
  Country: None (occurrence: None)
  Receive Date: 20050915
  Receipt Date: 20050630
  Transmission Date: 20060218
  Serious: Yes (Hospitalization)
  Sender: FDA-Public Use
  Company Number: US-MERCK-0507USA00144

PATIENT
  Age: 54 Year
  Sex: Male
  Weight: 82 kg

DRUGS (21)
  1. VIOXX [Suspect]
     Indication: BACK PAIN
     Route: 048
     Dates: start: 20000301, end: 20030801
  2. VIOXX [Suspect]
     Route: 048
     Dates: start: 20000301, end: 20030801
  3. VIOXX [Suspect]
     Route: 048
     Dates: start: 20000301, end: 20030801
  4. OXYCONTIN [Concomitant]
     Indication: PAIN
     Route: 065
     Dates: start: 20000101
  5. ACETAMINOPHEN AND HYDROCODONE BITARTRATE [Concomitant]
     Indication: SWELLING
     Route: 065
     Dates: start: 20000101
  6. AMITRIPTYLINE HYDROCHLORIDE [Concomitant]
     Indication: SLEEP DISORDER
     Route: 065
     Dates: start: 20000101
  7. TOBRADEX [Concomitant]
     Route: 065
     Dates: start: 20000101, end: 20010101
  8. CEPHALEXIN [Concomitant]
     Route: 065
     Dates: start: 20000101, end: 20040101
  9. ZITHROMAX [Concomitant]
     Route: 065
     Dates: start: 20000101
  10. ERYTHROMYCIN [Concomitant]
     Route: 065
     Dates: start: 20010101
  11. CYCLOBENZAPRINE HYDROCHLORIDE [Concomitant]
     Indication: MUSCLE RELAXANT THERAPY
     Route: 065
     Dates: start: 20010101
  12. AVELOX [Concomitant]
     Route: 065
     Dates: start: 20020101, end: 20030101
  13. BIAXIN XL [Concomitant]
     Route: 065
     Dates: start: 20020101
  14. ZYRTEC [Concomitant]
     Route: 065
     Dates: start: 20020101
  15. TIZANIDINE HYDROCHLORIDE [Concomitant]
     Route: 065
     Dates: start: 20020101
  16. MECLIZINE [Concomitant]
     Route: 065
     Dates: start: 20030101
  17. SULFAMETHOXAZOLE AND TRIMETHOPRIM [Concomitant]
     Route: 065
     Dates: start: 20020101
  18. TUSSIONEX [Concomitant]
     Route: 065
     Dates: start: 20020101
  19. ALLEGRA [Concomitant]
     Route: 065
     Dates: start: 20020101
  20. ACIPHEX [Concomitant]
     Indication: GASTROOESOPHAGEAL REFLUX DISEASE
     Route: 065
     Dates: start: 20020101
  21. METOCLOPRAMIDE [Concomitant]
     Indication: GASTROOESOPHAGEAL REFLUX DISEASE
     Route: 065
     Dates: start: 20020101, end: 20040101

REACTIONS (52)
  - ACUTE MYOCARDIAL INFARCTION [None]
  - ANXIETY [None]
  - AORTIC ANEURYSM [None]
  - AORTIC VALVE INCOMPETENCE [None]
  - ARTHRITIS [None]
  - ASTHENIA [None]
  - BLOOD CHOLESTEROL INCREASED [None]
  - BLOOD TRIGLYCERIDES INCREASED [None]
  - BRONCHITIS [None]
  - BURNING SENSATION [None]
  - CHEST DISCOMFORT [None]
  - CHEST PAIN [None]
  - CHOKING SENSATION [None]
  - CORONARY ARTERY DISEASE [None]
  - COUGH [None]
  - DERMATITIS CONTACT [None]
  - DIARRHOEA [None]
  - DILATATION VENTRICULAR [None]
  - DIZZINESS [None]
  - DRUG HYPERSENSITIVITY [None]
  - DYSPNOEA [None]
  - DYSURIA [None]
  - EJECTION FRACTION DECREASED [None]
  - FATIGUE [None]
  - GASTROENTERITIS [None]
  - HEADACHE [None]
  - HYPERHIDROSIS [None]
  - INTERVERTEBRAL DISC DEGENERATION [None]
  - INTERVERTEBRAL DISC DISORDER [None]
  - LACRIMATION INCREASED [None]
  - LIMB DISCOMFORT [None]
  - LOW DENSITY LIPOPROTEIN DECREASED [None]
  - MITRAL VALVE STENOSIS [None]
  - MYOCARDIAL ISCHAEMIA [None]
  - NAUSEA [None]
  - NODULE [None]
  - PAIN IN JAW [None]
  - PALPITATIONS [None]
  - PENIS DISORDER [None]
  - PHARYNGOLARYNGEAL PAIN [None]
  - PROSTATITIS [None]
  - PRURITUS [None]
  - PYREXIA [None]
  - RHINORRHOEA [None]
  - SCAR [None]
  - SINUS BRADYCARDIA [None]
  - SINUSITIS [None]
  - SYNCOPE [None]
  - TESTICULAR DISORDER [None]
  - URINARY HESITATION [None]
  - VENTRICULAR HYPOKINESIA [None]
  - VOMITING [None]
